FAERS Safety Report 7076514-5 (Version None)
Quarter: 2010Q4

REPORT INFORMATION
  Report Type: 
  Country: None (occurrence: None)
  Receive Date: 20101101
  Receipt Date: 20101025
  Transmission Date: 20110411
  Serious: Yes (Hospitalization, Other)
  Sender: FDA-Public Use
  Company Number: US-ELI_LILLY_AND_COMPANY-US201010006254

PATIENT
  Sex: Male

DRUGS (4)
  1. HUMULIN R [Suspect]
     Indication: DIABETES MELLITUS
     Dosage: 20 U, 2/D
  2. HUMULIN N [Suspect]
  3. PLAVIX [Concomitant]
  4. TOPROL-XL [Concomitant]

REACTIONS (16)
  - BLOOD GLUCOSE INCREASED [None]
  - DRUG INEFFECTIVE [None]
  - GAIT DISTURBANCE [None]
  - HAEMATURIA [None]
  - HEADACHE [None]
  - INFECTION [None]
  - INTERVERTEBRAL DISC PROTRUSION [None]
  - JOINT SWELLING [None]
  - LIMB DISCOMFORT [None]
  - OROPHARYNGEAL PAIN [None]
  - PAIN IN EXTREMITY [None]
  - PROSTATIC OPERATION [None]
  - STAPHYLOCOCCAL INFECTION [None]
  - STENT PLACEMENT [None]
  - URINARY RETENTION [None]
  - URINARY TRACT INFECTION [None]
